FAERS Safety Report 6550980-3 (Version None)
Quarter: 2010Q1

REPORT INFORMATION
  Report Type: 
  Country: None (occurrence: None)
  Receive Date: 20100125
  Receipt Date: 20100115
  Transmission Date: 20100710
  Serious: Yes (Disabling)
  Sender: FDA-Public Use
  Company Number: DK-PFIZER INC-2009297204

PATIENT
  Age: 32 Year
  Sex: Female

DRUGS (8)
  1. DEPO-MEDROL [Suspect]
     Indication: PAIN IN EXTREMITY
     Dosage: 40 MG, UNK
     Dates: start: 20061005, end: 20061005
  2. DEPO-MEDROL [Suspect]
     Dosage: 40 MG, UNK
     Dates: start: 20061116, end: 20061116
  3. DIPROSPAN [Suspect]
     Indication: PAIN IN EXTREMITY
     Dosage: UNK MG, UNK
     Dates: start: 20060524, end: 20060524
  4. DIPROSPAN [Suspect]
     Dosage: 40 MG, UNK
     Dates: start: 20061005, end: 20061005
  5. DIPROSPAN [Suspect]
     Dosage: 40 MG, UNK
     Dates: start: 20061116, end: 20061116
  6. LIDOCAINE [Concomitant]
     Indication: PAIN IN EXTREMITY
     Dosage: 1 ML, UNK
     Dates: start: 20060524, end: 20060524
  7. LIDOCAINE [Concomitant]
     Dosage: 1 ML, UNK
     Dates: start: 20061005, end: 20061005
  8. LIDOCAINE [Concomitant]
     Dosage: 1 ML, UNK
     Dates: start: 20061116, end: 20061116

REACTIONS (2)
  - ATROPHY [None]
  - PAIN IN EXTREMITY [None]
